FAERS Safety Report 25336905 (Version 1)
Quarter: 2025Q2

REPORT INFORMATION
  Report Type: Spontaneous
  Country: US (occurrence: US)
  Receive Date: 20250520
  Receipt Date: 20250520
  Transmission Date: 20250716
  Serious: No
  Sender: BAUSCH AND LOMB
  Company Number: US-BAUSCHBL-2025BNL008539

PATIENT
  Age: 66 Year
  Sex: Female

DRUGS (1)
  1. XIIDRA [Suspect]
     Active Substance: LIFITEGRAST
     Indication: Product used for unknown indication
     Route: 047

REACTIONS (6)
  - Dysgeusia [Unknown]
  - Wrong dose [Unknown]
  - Product use complaint [Unknown]
  - Product container issue [Unknown]
  - Product closure removal difficult [Unknown]
  - Product delivery mechanism issue [Unknown]
